FAERS Safety Report 25008237 (Version 1)
Quarter: 2025Q1

REPORT INFORMATION
  Report Type: Spontaneous
  Country: US (occurrence: US)
  Receive Date: 20250225
  Receipt Date: 20250225
  Transmission Date: 20250409
  Serious: No
  Sender: TAKEDA
  Company Number: US-TAKEDA-2025TUS017167

PATIENT
  Sex: Female

DRUGS (3)
  1. ENTYVIO [Suspect]
     Active Substance: VEDOLIZUMAB
  2. ENTYVIO [Suspect]
     Active Substance: VEDOLIZUMAB
     Indication: Product used for unknown indication
  3. ENTYVIO [Suspect]
     Active Substance: VEDOLIZUMAB

REACTIONS (3)
  - Diarrhoea [Unknown]
  - Weight decreased [Unknown]
  - Vomiting [Unknown]
